FAERS Safety Report 22340068 (Version 1)
Quarter: 2023Q2

REPORT INFORMATION
  Report Type: Spontaneous
  Country: US (occurrence: None)
  Receive Date: 20230518
  Receipt Date: 20230518
  Transmission Date: 20230722
  Serious: Yes (Other)
  Sender: FDA-Public Use
  Company Number: US-ROCHE-3351437

PATIENT
  Sex: Female

DRUGS (9)
  1. ACTEMRA [Suspect]
     Active Substance: TOCILIZUMAB
     Indication: Rheumatoid arthritis
     Dosage: STRENGTH: 162MG/0.9ML
     Route: 058
  2. ACTEMRA [Suspect]
     Active Substance: TOCILIZUMAB
  3. FUROSEMIDE [Concomitant]
     Active Substance: FUROSEMIDE
  4. LOSARTAN [Concomitant]
     Active Substance: LOSARTAN
  5. METOPROLOL [Concomitant]
     Active Substance: METOPROLOL
  6. POTASSIUM CHLORIDE [Concomitant]
     Active Substance: POTASSIUM CHLORIDE
  7. PREDNISONE [Concomitant]
     Active Substance: PREDNISONE
  8. TRAMADOL HCL [Concomitant]
     Active Substance: TRAMADOL HYDROCHLORIDE
  9. XELJANZ XR [Concomitant]
     Active Substance: TOFACITINIB CITRATE

REACTIONS (2)
  - Cerebrovascular accident [Not Recovered/Not Resolved]
  - Dysarthria [Not Recovered/Not Resolved]
